FAERS Safety Report 7386214-X (Version None)
Quarter: 2011Q1

REPORT INFORMATION
  Report Type: 
  Country: None (occurrence: None)
  Receive Date: 20110331
  Receipt Date: 20110322
  Transmission Date: 20110831
  Serious: Yes (Hospitalization)
  Sender: FDA-Public Use
  Company Number: US-JNJFOC-20110309413

PATIENT
  Sex: Male
  Weight: 88.45 kg

DRUGS (3)
  1. INVEGA SUSTENNA [Suspect]
     Indication: SCHIZOAFFECTIVE DISORDER
     Route: 030
  2. COMBIVENT [Concomitant]
     Indication: CHRONIC OBSTRUCTIVE PULMONARY DISEASE
     Route: 055
  3. RISPERDAL [Suspect]
     Indication: SCHIZOAFFECTIVE DISORDER
     Route: 048

REACTIONS (5)
  - ADVERSE EVENT [None]
  - WEIGHT INCREASED [None]
  - SOMNOLENCE [None]
  - BLOOD CHOLESTEROL INCREASED [None]
  - PRODUCT QUALITY ISSUE [None]
